FAERS Safety Report 18467643 (Version 1)
Quarter: 2020Q4

REPORT INFORMATION
  Report Type: Spontaneous
  Country: US (occurrence: US)
  Receive Date: 20201104
  Receipt Date: 20201104
  Transmission Date: 20210114
  Serious: Yes (Hospitalization)
  Sender: FDA-Public Use
  Company Number: None

PATIENT
  Age: 23 Year
  Sex: Female
  Weight: 111.1 kg

DRUGS (14)
  1. MISOPROSTOL. [Suspect]
     Active Substance: MISOPROSTOL
     Indication: POSTPARTUM HAEMORRHAGE
     Dosage: ?          OTHER FREQUENCY:ONCE;?
     Route: 048
     Dates: start: 20201007, end: 20201007
  2. EPHEDRINE  (INTRAVENOUS) [Concomitant]
     Dates: start: 20201007, end: 20201007
  3. SODIUM CHLORIDE 0.9% DRIP [Concomitant]
     Dates: start: 20201006, end: 20201008
  4. FENTANYL EPIDURAL [Concomitant]
     Dates: start: 20201007, end: 20201007
  5. MAGNESIUM SULFATE (IV) [Concomitant]
     Dates: start: 20201007, end: 20201009
  6. OXYTOCIN. [Concomitant]
     Active Substance: OXYTOCIN
     Dates: start: 20201007, end: 20201008
  7. SUCCINYLCHOLINE [Concomitant]
     Active Substance: SUCCINYLCHOLINE
     Dates: start: 20201008, end: 20201008
  8. ZOLPIDEM [Concomitant]
     Active Substance: ZOLPIDEM TARTRATE
     Dates: start: 20201006, end: 20201007
  9. LIDOCAINE 2% (PRES. FREE) [Concomitant]
     Dates: start: 20201007, end: 20201007
  10. BUTORPHANOL [Concomitant]
     Active Substance: BUTORPHANOL
     Dates: start: 20201006, end: 20201008
  11. ETOMIDATE. [Concomitant]
     Active Substance: ETOMIDATE
     Dates: start: 20201008, end: 20201008
  12. ROPIVACAINE. [Concomitant]
     Active Substance: ROPIVACAINE HYDROCHLORIDE
     Dates: start: 20201007, end: 20201008
  13. CARBOPROST [Concomitant]
     Active Substance: CARBOPROST
     Dates: start: 20201007, end: 20201007
  14. AMPICILLIN [Concomitant]
     Active Substance: AMPICILLIN
     Dates: start: 20201006, end: 20201008

REACTIONS (8)
  - Oxygen saturation increased [None]
  - Mental status changes [None]
  - Unresponsive to stimuli [None]
  - Muscle rigidity [None]
  - Hypertension [None]
  - Drooling [None]
  - Body temperature increased [None]
  - Tachycardia [None]

NARRATIVE: CASE EVENT DATE: 20201007
